FAERS Safety Report 8298307-3 (Version None)
Quarter: 2012Q2

REPORT INFORMATION
  Report Type: 
  Country: None (occurrence: None)
  Receive Date: 20120419
  Receipt Date: 20120411
  Transmission Date: 20120825
  Serious: Yes (Other)
  Sender: FDA-Public Use
  Company Number: GXBR2011US04812

PATIENT
  Sex: Female
  Weight: 72.562 kg

DRUGS (1)
  1. ENOXAPARIN SODIUM [Suspect]
     Indication: THROMBOSIS PROPHYLAXIS
     Dosage: 40 MG, QD
     Route: 058
     Dates: start: 20110801, end: 20120405

REACTIONS (9)
  - PRE-ECLAMPSIA [None]
  - INJECTION SITE HAEMORRHAGE [None]
  - MIGRAINE [None]
  - TEMPERATURE INTOLERANCE [None]
  - INJURY ASSOCIATED WITH DEVICE [None]
  - HELLP SYNDROME [None]
  - PREMATURE LABOUR [None]
  - PHOTOPHOBIA [None]
  - MATERNAL EXPOSURE DURING PREGNANCY [None]
